FAERS Safety Report 9753884 (Version 3)
Quarter: 2015Q3

REPORT INFORMATION
  Report Type: Spontaneous
  Country: US (occurrence: US)
  Receive Date: 20131213
  Receipt Date: 20150805
  Transmission Date: 20151125
  Serious: No
  Sender: FDA-Public Use
  Company Number: US-GILEAD-2010-0027818

PATIENT
  Age: 77 Year
  Sex: Female

DRUGS (21)
  1. PLAQUENIL [Concomitant]
     Active Substance: HYDROXYCHLOROQUINE SULFATE
  2. PREDNISONE. [Concomitant]
     Active Substance: PREDNISONE
  3. LASIX [Concomitant]
     Active Substance: FUROSEMIDE
  4. NORVASC [Concomitant]
     Active Substance: AMLODIPINE BESYLATE
  5. ARICEPT [Concomitant]
     Active Substance: DONEPEZIL HYDROCHLORIDE
  6. LABETALOL [Concomitant]
     Active Substance: LABETALOL\LABETALOL HYDROCHLORIDE
  7. FERROUS GLUCONATE [Concomitant]
     Active Substance: FERROUS GLUCONATE
  8. VITAMIN B [Concomitant]
     Active Substance: VITAMIN B
  9. ASPIRIN. [Concomitant]
     Active Substance: ASPIRIN
  10. LETAIRIS [Suspect]
     Active Substance: AMBRISENTAN
     Indication: PULMONARY ARTERIAL HYPERTENSION
     Route: 048
     Dates: start: 20100113
  11. VITAMIN E [Concomitant]
     Active Substance: .ALPHA.-TOCOPHEROL
  12. COENZYME Q10 [Concomitant]
     Active Substance: UBIDECARENONE
  13. NEURONTIN [Concomitant]
     Active Substance: GABAPENTIN
  14. VITAMIN C [Concomitant]
     Active Substance: ASCORBIC ACID
  15. SALSALATE. [Concomitant]
     Active Substance: SALSALATE
  16. SYNTHROID [Concomitant]
     Active Substance: LEVOTHYROXINE SODIUM
  17. GINKOBA [Concomitant]
     Active Substance: GINKGO
  18. ACTONEL [Concomitant]
     Active Substance: RISEDRONATE SODIUM
  19. PILOCARPUS [Concomitant]
  20. VICODIN ES [Concomitant]
     Active Substance: ACETAMINOPHEN\HYDROCODONE BITARTRATE
  21. SANCTURA [Concomitant]
     Active Substance: TROSPIUM CHLORIDE

REACTIONS (3)
  - Rash [Recovering/Resolving]
  - Cellulitis [Recovering/Resolving]
  - Peripheral swelling [Recovering/Resolving]
